FAERS Safety Report 5925039-6 (Version None)
Quarter: 2008Q4

REPORT INFORMATION
  Report Type: 
  Country: None (occurrence: None)
  Receive Date: 20081021
  Receipt Date: 20081014
  Transmission Date: 20090506
  Serious: Yes (Hospitalization, Other)
  Sender: FDA-Public Use
  Company Number: US-BAYER-200835123NA

PATIENT
  Age: 26 Year
  Sex: Female
  Weight: 52 kg

DRUGS (1)
  1. MIRENA [Suspect]
     Indication: CONTRACEPTION
     Route: 015
     Dates: start: 20080731

REACTIONS (8)
  - ABDOMINAL PAIN [None]
  - IUCD COMPLICATION [None]
  - NAUSEA [None]
  - OVARIAN CYST [None]
  - PELVIC INFLAMMATORY DISEASE [None]
  - TUBO-OVARIAN ABSCESS [None]
  - VAGINAL HAEMORRHAGE [None]
  - VOMITING [None]
